FAERS Safety Report 7436674-0 (Version None)
Quarter: 2011Q2

REPORT INFORMATION
  Report Type: 
  Country: None (occurrence: None)
  Receive Date: 20110426
  Receipt Date: 20110412
  Transmission Date: 20111010
  Serious: No
  Sender: FDA-Public Use
  Company Number: PHHY2011JP30236

PATIENT
  Age: 50 Year

DRUGS (1)
  1. TASIGNA [Suspect]
     Dosage: 400 MG ONCE
     Route: 048

REACTIONS (1)
  - OVERDOSE [None]
